FAERS Safety Report 15448805 (Version 6)
Quarter: 2019Q1

REPORT INFORMATION
  Report Type: Report from Study
  Country: CA (occurrence: CA)
  Receive Date: 20180929
  Receipt Date: 20190121
  Transmission Date: 20190417
  Serious: Yes (Hospitalization, Other)
  Sender: FDA-Public Use
  Company Number: PHHY2018CA079120

PATIENT
  Age: 49 Year
  Sex: Male
  Weight: 110 kg

DRUGS (11)
  1. DABRAFENIB [Suspect]
     Active Substance: DABRAFENIB
     Indication: METASTATIC MALIGNANT MELANOMA
     Dosage: 100 MG, BID
     Route: 048
     Dates: start: 20180703
  2. DABRAFENIB [Suspect]
     Active Substance: DABRAFENIB
     Dosage: 150 MG, BID
     Route: 048
     Dates: start: 20180928
  3. DABRAFENIB [Suspect]
     Active Substance: DABRAFENIB
     Dosage: 100 MG, UNK
     Route: 048
  4. RAMIPRIL. [Concomitant]
     Active Substance: RAMIPRIL
     Indication: PRODUCT USED FOR UNKNOWN INDICATION
     Dosage: 5 MG, QD
     Route: 048
     Dates: start: 20181112
  5. TRAMETINIB [Suspect]
     Active Substance: TRAMETINIB
     Indication: METASTATIC MALIGNANT MELANOMA
     Dosage: 2 MG, QD
     Route: 048
     Dates: start: 20180703
  6. ASPIRIN. [Concomitant]
     Active Substance: ASPIRIN
     Indication: PRODUCT USED FOR UNKNOWN INDICATION
     Dosage: 8 MG, QD
     Route: 048
     Dates: start: 20181112
  7. TRAMETINIB [Suspect]
     Active Substance: TRAMETINIB
     Dosage: 1.5 MG, AT BEDTIME
     Route: 048
     Dates: start: 20180928
  8. N ACETYL CYSTEINE [Concomitant]
     Active Substance: ACETYLCYSTEINE
     Indication: PRODUCT USED FOR UNKNOWN INDICATION
     Dosage: 600 MG, UNK
     Route: 048
  9. DEXAMETHASONE. [Concomitant]
     Active Substance: DEXAMETHASONE
     Indication: PRODUCT USED FOR UNKNOWN INDICATION
     Dosage: UNK
     Route: 065
  10. ROSUVASTATINA [Concomitant]
     Active Substance: ROSUVASTATIN
     Indication: PRODUCT USED FOR UNKNOWN INDICATION
     Dosage: 10 MG, QD
     Route: 048
     Dates: start: 20181112
  11. ATORVASTATIN [Concomitant]
     Active Substance: ATORVASTATIN
     Indication: PRODUCT USED FOR UNKNOWN INDICATION
     Dosage: 10 MG, UNK
     Route: 065

REACTIONS (45)
  - Metamyelocyte percentage increased [Unknown]
  - Myelocyte count increased [Unknown]
  - Heart rate increased [Unknown]
  - Memory impairment [Recovering/Resolving]
  - Motor dysfunction [Unknown]
  - Alanine aminotransferase increased [Recovering/Resolving]
  - Hepatic steatosis [Unknown]
  - Decreased appetite [Recovering/Resolving]
  - Fatigue [Unknown]
  - Blood magnesium increased [Unknown]
  - Influenza like illness [Recovering/Resolving]
  - Oedema [Unknown]
  - Thalamic infarction [Recovering/Resolving]
  - Arteriosclerosis [Unknown]
  - Cardiomyopathy [Unknown]
  - Ear infection [Unknown]
  - Lymphocyte count decreased [Recovered/Resolved]
  - Heart rate decreased [Unknown]
  - Blood bicarbonate increased [Unknown]
  - Neutropenia [Recovering/Resolving]
  - Aspartate aminotransferase increased [Recovering/Resolving]
  - Malaise [Unknown]
  - Atrial enlargement [Unknown]
  - Facial paralysis [Unknown]
  - Mass [Unknown]
  - Hyperhidrosis [Unknown]
  - Blood alkaline phosphatase increased [Unknown]
  - Confusional state [Recovered/Resolved]
  - Blood chloride decreased [Unknown]
  - Somnolence [Unknown]
  - Pancytopenia [Recovering/Resolving]
  - Gamma-glutamyltransferase increased [Recovering/Resolving]
  - Pyrexia [Recovering/Resolving]
  - Dizziness [Unknown]
  - Cerebral infarction [Recovering/Resolving]
  - Blood lactate dehydrogenase increased [Unknown]
  - Thrombocytopenia [Recovering/Resolving]
  - Chills [Recovered/Resolved]
  - Ejection fraction decreased [Not Recovered/Not Resolved]
  - Facial paresis [Unknown]
  - Retention cyst [Unknown]
  - Left ventricular dysfunction [Unknown]
  - Blood pressure systolic increased [Recovering/Resolving]
  - Headache [Unknown]
  - Dysarthria [Recovering/Resolving]

NARRATIVE: CASE EVENT DATE: 20180703
